FAERS Safety Report 9894601 (Version 1)
Quarter: 2014Q1

REPORT INFORMATION
  Report Type: Spontaneous
  Country: IT (occurrence: IT)
  Receive Date: 20140213
  Receipt Date: 20140213
  Transmission Date: 20141002
  Serious: Yes (Hospitalization)
  Sender: FDA-Public Use
  Company Number: PHHY2014IT016017

PATIENT
  Age: 85 Year
  Sex: Female

DRUGS (4)
  1. QUETIAPINE [Suspect]
     Indication: PSYCHOTIC DISORDER
     Dosage: 100 MG, QD
     Route: 048
     Dates: end: 20140121
  2. DIAZEPAM [Suspect]
     Indication: PSYCHOTIC DISORDER
     Dosage: 20 DRP, PRN
     Route: 048
     Dates: end: 20140121
  3. AKINETON//BIPERIDEN [Suspect]
     Indication: PSYCHOTIC DISORDER
     Dosage: 4 MG, QD
     Route: 048
     Dates: end: 20140121
  4. TALOFEN [Suspect]
     Indication: PSYCHOTIC DISORDER
     Dosage: 20 DRP, QD
     Route: 048
     Dates: end: 20140121

REACTIONS (1)
  - Sopor [Recovered/Resolved]
